FAERS Safety Report 11330570 (Version 2)
Quarter: 2015Q4

REPORT INFORMATION
  Report Type: Spontaneous
  Country: US (occurrence: US)
  Receive Date: 20150803
  Receipt Date: 20151102
  Transmission Date: 20160304
  Serious: Yes (Death, Other)
  Sender: FDA-Public Use
  Company Number: US-ROCHE-1616810

PATIENT
  Age: 77 Year
  Sex: Male
  Weight: 80.81 kg

DRUGS (3)
  1. RAPAMUNE [Concomitant]
     Active Substance: SIROLIMUS
     Indication: IMMUNOSUPPRESSION
     Route: 048
  2. PREDNISONE. [Concomitant]
     Active Substance: PREDNISONE
     Route: 048
  3. CELLCEPT [Suspect]
     Active Substance: MYCOPHENOLATE MOFETIL\MYCOPHENOLATE MOFETIL HYDROCHLORIDE
     Indication: RENAL TRANSPLANT
     Route: 048
     Dates: start: 20030618, end: 20150421

REACTIONS (3)
  - Neoplasm malignant [Fatal]
  - Neoplasm [Unknown]
  - Bile duct cancer [Fatal]

NARRATIVE: CASE EVENT DATE: 20150421
